FAERS Safety Report 7451165-9 (Version None)
Quarter: 2011Q2

REPORT INFORMATION
  Report Type: 
  Country: None (occurrence: None)
  Receive Date: 20110502
  Receipt Date: 20110421
  Transmission Date: 20111010
  Serious: Yes (Other)
  Sender: FDA-Public Use
  Company Number: US-ASTRAZENECA-2011SE23252

PATIENT
  Age: 37 Year
  Sex: Female

DRUGS (1)
  1. SEROQUEL [Suspect]
     Route: 048

REACTIONS (3)
  - LIMB DEFORMITY [None]
  - ROAD TRAFFIC ACCIDENT [None]
  - LIMB CRUSHING INJURY [None]
